FAERS Safety Report 9786109 (Version 1)
Quarter: 2013Q4

REPORT INFORMATION
  Report Type: Spontaneous
  Country: US (occurrence: US)
  Receive Date: 20131227
  Receipt Date: 20131227
  Transmission Date: 20140711
  Serious: Yes (Other)
  Sender: FDA-Public Use
  Company Number: US-ASTRAZENECA-2013SE92785

PATIENT
  Age: 83 Year
  Sex: Male
  Weight: 77.1 kg

DRUGS (12)
  1. BUDESONIDE [Suspect]
     Indication: COLITIS
     Route: 048
  2. METOPROLOL SUCCINATE [Suspect]
     Indication: CARDIAC DISORDER
     Route: 048
  3. OMEPRAZOLE [Suspect]
     Indication: ULCER HAEMORRHAGE
     Route: 048
  4. FUROSEMIDE [Concomitant]
     Indication: CARDIAC DISORDER
     Route: 048
  5. KLOR-CON M10 [Concomitant]
     Dosage: DAILY
     Route: 048
  6. GEMFIBROZIL [Concomitant]
     Indication: LIPIDS
     Route: 048
  7. VITAMIN B12 [Concomitant]
     Route: 048
  8. ALLOPURINOL [Concomitant]
     Indication: GOUT
     Route: 048
  9. ASPIRIN [Concomitant]
     Indication: CARDIAC DISORDER
     Route: 048
  10. EXTRA STRENGTH ACETAMINOPHEN [Concomitant]
     Indication: PAIN
     Route: 048
  11. IRON [Concomitant]
     Indication: HAEMOGLOBIN DECREASED
     Route: 048
  12. MULTI VITAMIN [Concomitant]
     Indication: VITAMIN SUPPLEMENTATION
     Dosage: DAILY
     Route: 048

REACTIONS (5)
  - Ulcer haemorrhage [Unknown]
  - Haemoglobin decreased [Unknown]
  - Off label use [Unknown]
  - Off label use [Unknown]
  - Drug effect decreased [Unknown]
